FAERS Safety Report 23365568 (Version 1)
Quarter: 2024Q1

REPORT INFORMATION
  Report Type: Spontaneous
  Country: ES (occurrence: None)
  Receive Date: 20240104
  Receipt Date: 20240104
  Transmission Date: 20240410
  Serious: Yes (Other)
  Sender: FDA-Public Use
  Company Number: 2023A294402

PATIENT
  Age: 81 Year
  Sex: Male
  Weight: 74 kg

DRUGS (21)
  1. SYMBICORT [Suspect]
     Active Substance: BUDESONIDE\FORMOTEROL FUMARATE DIHYDRATE
     Dosage: 120 DOSE INHALER,UNKNOWN UNKNOWN
     Route: 055
     Dates: start: 20231215
  2. LEVOFLOXACIN [Suspect]
     Active Substance: LEVOFLOXACIN
     Indication: Pneumonia
     Dosage: 1/24H
     Dates: start: 20231215, end: 20231219
  3. TAMSULOSIN HYDROCHLORIDE [Concomitant]
     Active Substance: TAMSULOSIN HYDROCHLORIDE
     Dates: start: 20181114
  4. ESOMEPRAZOLE [Concomitant]
     Active Substance: ESOMEPRAZOLE
  5. REPAGLINIDE [Concomitant]
     Active Substance: REPAGLINIDE
     Dates: start: 20221024
  6. RINODUO [Concomitant]
  7. ATENOLOL [Concomitant]
     Active Substance: ATENOLOL
     Route: 048
     Dates: start: 20101229
  8. CIANOCOBALAMINA [Concomitant]
     Dates: start: 20230907
  9. FENOFIBRATE [Concomitant]
     Active Substance: FENOFIBRATE
  10. RAMIPRIL [Concomitant]
     Active Substance: RAMIPRIL
     Dates: start: 20210126
  11. PAROXETINE [Concomitant]
     Active Substance: PAROXETINE
     Dates: start: 20200520
  12. ASPIRIN [Concomitant]
     Active Substance: ASPIRIN
  13. DOMPERIDONE [Concomitant]
     Active Substance: DOMPERIDONE
     Dates: start: 20231128
  14. NATECAL D FLAS [Concomitant]
     Dates: start: 20190219
  15. HYDROCHLOROTHIAZIDE\RAMIPRIL [Concomitant]
     Active Substance: HYDROCHLOROTHIAZIDE\RAMIPRIL
     Dates: start: 20210108
  16. POTASSIUM CITRATE [Concomitant]
     Active Substance: POTASSIUM CITRATE
     Dates: start: 20070927
  17. TRAZODONE HYDROCHLORIDE [Concomitant]
     Active Substance: TRAZODONE HYDROCHLORIDE
     Dates: start: 20221110
  18. JANUVIA [Concomitant]
     Active Substance: SITAGLIPTIN PHOSPHATE
     Dates: start: 20220823
  19. ATORVASTATIN [Concomitant]
     Active Substance: ATORVASTATIN
     Dates: start: 20120521
  20. ACETAMINOPHEN [Concomitant]
     Active Substance: ACETAMINOPHEN
     Dates: start: 20220329
  21. ALLOPURINOL [Concomitant]
     Active Substance: ALLOPURINOL
     Dates: start: 20070927

REACTIONS (1)
  - Diplegia [Recovered/Resolved]

NARRATIVE: CASE EVENT DATE: 20231217
